FAERS Safety Report 26055640 (Version 2)
Quarter: 2025Q4

REPORT INFORMATION
  Report Type: Report from Study
  Country: JP (occurrence: JP)
  Receive Date: 20251117
  Receipt Date: 20251204
  Transmission Date: 20260118
  Serious: Yes (Hospitalization, Other)
  Sender: REGENERON
  Company Number: JP-REGENERON PHARMACEUTICALS, INC.-2025-066077

PATIENT
  Age: 38 Year
  Sex: Female

DRUGS (4)
  1. LIBTAYO [Suspect]
     Active Substance: CEMIPLIMAB-RWLC
     Indication: Cervix carcinoma recurrent
     Dosage: 350 MG
     Route: 041
     Dates: start: 20250204, end: 20250204
  2. LIBTAYO [Suspect]
     Active Substance: CEMIPLIMAB-RWLC
     Dosage: 350 MG
     Route: 041
     Dates: start: 20250303, end: 20250303
  3. LIBTAYO [Suspect]
     Active Substance: CEMIPLIMAB-RWLC
     Dosage: 350 MG
     Route: 041
     Dates: start: 20250324, end: 20250324
  4. LIBTAYO [Suspect]
     Active Substance: CEMIPLIMAB-RWLC
     Dosage: 350 MG
     Route: 041
     Dates: start: 20250414, end: 20250414

REACTIONS (5)
  - Lymphadenopathy [Recovering/Resolving]
  - Metastases to the mediastinum [Recovering/Resolving]
  - Superior vena cava syndrome [Recovering/Resolving]
  - Face oedema [Recovering/Resolving]
  - Dyspnoea [Recovering/Resolving]

NARRATIVE: CASE EVENT DATE: 20250306
